FAERS Safety Report 6130979-1 (Version None)
Quarter: 2009Q1

REPORT INFORMATION
  Report Type: 
  Country: None (occurrence: None)
  Receive Date: 20090323
  Receipt Date: 20090310
  Transmission Date: 20090719
  Serious: Yes (Hospitalization, Disabling, Other)
  Sender: FDA-Public Use
  Company Number: 23007M09ESP

PATIENT
  Age: 42 Year
  Sex: Male

DRUGS (1)
  1. REBIF [Suspect]
     Indication: MULTIPLE SCLEROSIS
     Dosage: 0.5 ML, 3 IN 1 WEEKS, SUBCUTANEOUS
     Route: 058
     Dates: start: 20060612, end: 20080117

REACTIONS (1)
  - GLIOBLASTOMA [None]
